FAERS Safety Report 7199384-3 (Version None)
Quarter: 2010Q4

REPORT INFORMATION
  Report Type: 
  Country: None (occurrence: None)
  Receive Date: 20101228
  Receipt Date: 20101220
  Transmission Date: 20110411
  Serious: Yes (Other)
  Sender: FDA-Public Use
  Company Number: US-AMGEN-USASP2010010174

PATIENT

DRUGS (2)
  1. ENBREL [Suspect]
     Indication: RHEUMATOID ARTHRITIS
     Dosage: 50 MG, QWK
     Dates: start: 20091201
  2. ENBREL [Suspect]
     Indication: SCLERITIS

REACTIONS (3)
  - ARTHRALGIA [None]
  - DEVICE MALFUNCTION [None]
  - ULCER HAEMORRHAGE [None]
